FAERS Safety Report 8513149-9 (Version None)
Quarter: 2012Q3

REPORT INFORMATION
  Report Type: 
  Country: None (occurrence: None)
  Receive Date: 20120716
  Receipt Date: 20120705
  Transmission Date: 20120928
  Serious: Yes (Life-Threatening, Hospitalization)
  Sender: FDA-Public Use
  Company Number: CA-INCYTE CORPORATION-2012IN001072

PATIENT
  Age: 77 Year
  Sex: Female
  Weight: 57.3 kg

DRUGS (1)
  1. INC424 [Suspect]
     Indication: MYELOFIBROSIS
     Dosage: 20 MG, BID
     Route: 048
     Dates: start: 20120604, end: 20120608

REACTIONS (1)
  - TUMOUR LYSIS SYNDROME [None]
